FAERS Safety Report 11856989 (Version 3)
Quarter: 2016Q1

REPORT INFORMATION
  Report Type: Report from Study
  Country: JP (occurrence: JP)
  Receive Date: 20151221
  Receipt Date: 20160219
  Transmission Date: 20160526
  Serious: Yes (Hospitalization)
  Sender: FDA-Public Use
  Company Number: JP-DSJP-DSJ-2015-139191AA

PATIENT

DRUGS (11)
  1. BLINDED CLOPIDOGREL [Suspect]
     Active Substance: CLOPIDOGREL BISULFATE
     Indication: ISCHAEMIC STROKE
     Dosage: BLINDED
     Route: 048
     Dates: start: 20150221, end: 20151216
  2. ANTEBATE [Concomitant]
     Active Substance: BETAMETHASONE DIPROPIONATE
     Indication: XERODERMA
     Dosage: UNK, AS NEEDED, AT THE ITCH
     Route: 050
     Dates: start: 20150807
  3. BLINDED CS-747S [Suspect]
     Active Substance: PRASUGREL
     Indication: ISCHAEMIC STROKE
     Dosage: BLINDED
     Route: 048
     Dates: start: 20150221, end: 20151216
  4. NIFEDIPINE. [Suspect]
     Active Substance: NIFEDIPINE
     Indication: HYPERTENSION
     Dosage: UNK, QD
     Route: 048
     Dates: start: 20150107, end: 20151216
  5. ANTEBATE [Concomitant]
     Active Substance: BETAMETHASONE DIPROPIONATE
     Indication: XERODERMA
     Dosage: UNK, AS NEEDED
     Route: 050
     Dates: start: 20150723
  6. MENTHOLATUM                        /01638601/ [Concomitant]
     Indication: XERODERMA
     Dosage: UNK, QD
     Route: 050
     Dates: start: 20151204, end: 20151209
  7. OLMETEC [Suspect]
     Active Substance: OLMESARTAN MEDOXOMIL
     Indication: HYPERTENSION
     Dosage: UNK, QD
     Route: 048
     Dates: start: 20150105, end: 20151216
  8. ARTIST [Suspect]
     Active Substance: CARVEDILOL
     Indication: HYPERTENSION
     Dosage: UNK, QD
     Route: 048
     Dates: start: 20150710, end: 20151215
  9. NIFEDIPINE. [Suspect]
     Active Substance: NIFEDIPINE
     Dosage: UNK, QD
     Route: 065
     Dates: start: 20151224
  10. LIPITOR [Suspect]
     Active Substance: ATORVASTATIN CALCIUM
     Indication: DYSLIPIDAEMIA
     Dosage: UNK, QD
     Route: 048
     Dates: start: 20150116, end: 20151215
  11. ARTIST [Suspect]
     Active Substance: CARVEDILOL
     Dosage: UNK, QD
     Route: 065

REACTIONS (1)
  - Dermatitis exfoliative [Recovering/Resolving]

NARRATIVE: CASE EVENT DATE: 20151209
